FAERS Safety Report 4447991-0 (Version None)
Quarter: 2004Q3

REPORT INFORMATION
  Report Type: 
  Country: None (occurrence: None)
  Receive Date: 20040913
  Receipt Date: 20040614
  Transmission Date: 20050211
  Serious: Yes (Hospitalization)
  Sender: FDA-Public Use
  Company Number: JP-MERCK-0406USA01706

PATIENT
  Age: 69 Year
  Sex: Male

DRUGS (14)
  1. ONEALFA [Concomitant]
     Route: 048
     Dates: start: 20040414, end: 20040519
  2. LENDORM [Concomitant]
     Route: 048
     Dates: start: 20040417, end: 20040519
  3. CALCIUM LACTATE [Concomitant]
     Route: 048
     Dates: start: 20040414, end: 20040519
  4. CEFZON [Concomitant]
     Route: 065
     Dates: start: 20040513, end: 20040519
  5. PEPCID RPD [Suspect]
     Route: 048
     Dates: start: 20040417, end: 20040513
  6. ISCOTIN [Concomitant]
     Route: 048
     Dates: start: 20040414, end: 20040519
  7. FLORID [Concomitant]
     Route: 048
     Dates: start: 20040414, end: 20040519
  8. NEU-UP [Concomitant]
     Route: 058
     Dates: start: 20040513, end: 20040517
  9. ADALAT [Concomitant]
     Route: 048
     Dates: start: 20040417, end: 20040519
  10. ISODINE [Concomitant]
     Route: 065
     Dates: start: 20040414
  11. PREDONINE [Concomitant]
     Indication: DERMATOMYOSITIS
     Route: 048
     Dates: start: 20040414, end: 20040427
  12. PREDONINE [Concomitant]
     Route: 048
     Dates: start: 20040415
  13. MUCOSTA [Concomitant]
     Route: 048
     Dates: start: 20040414, end: 20040519
  14. BAKTAR [Suspect]
     Route: 048
     Dates: end: 20040513

REACTIONS (10)
  - ANAEMIA [None]
  - CLOSTRIDIUM COLITIS [None]
  - GASTRIC ULCER HAEMORRHAGE [None]
  - HAEMATEMESIS [None]
  - HYPERTHERMIA [None]
  - MELAENA [None]
  - NEUTROPENIA [None]
  - NEUTROPHIL COUNT DECREASED [None]
  - PNEUMONIA [None]
  - WHITE BLOOD CELL COUNT DECREASED [None]
